FAERS Safety Report 7033111-5 (Version None)
Quarter: 2010Q4

REPORT INFORMATION
  Report Type: 
  Country: None (occurrence: None)
  Receive Date: 20101007
  Receipt Date: 20101007
  Transmission Date: 20110411
  Serious: Yes (Disabling, Other)
  Sender: FDA-Public Use
  Company Number: US-PFIZER INC-2005164851

PATIENT
  Sex: Male
  Weight: 104.33 kg

DRUGS (2)
  1. VIAGRA [Suspect]
     Indication: ERECTILE DYSFUNCTION
     Dosage: 100 MG, AS NEEDED
     Route: 048
     Dates: start: 20031205, end: 20050101
  2. PRILOSEC [Concomitant]
     Dosage: UNK
     Route: 065

REACTIONS (4)
  - BLINDNESS [None]
  - NIGHT BLINDNESS [None]
  - VISUAL ACUITY REDUCED [None]
  - VISUAL FIELD DEFECT [None]
